FAERS Safety Report 5164969-2 (Version None)
Quarter: 2006Q4

REPORT INFORMATION
  Report Type: 
  Country: None (occurrence: None)
  Receive Date: 20061124
  Receipt Date: 20061109
  Transmission Date: 20070319
  Serious: Yes (Other)
  Sender: FDA-Public Use
  Company Number: 2006141990

PATIENT
  Age: 35 Year
  Sex: Female

DRUGS (2)
  1. LYRICA [Suspect]
     Indication: PAIN
     Dosage: 600MG (300 MG, 2 IN 1 D)
     Dates: start: 20061012, end: 20060101
  2. RABEPRAZOLE SODIUM [Concomitant]

REACTIONS (5)
  - GENERALISED OEDEMA [None]
  - GLOMERULAR FILTRATION RATE DECREASED [None]
  - POLYDIPSIA [None]
  - URINARY RETENTION [None]
  - WEIGHT INCREASED [None]
